FAERS Safety Report 17718950 (Version 1)
Quarter: 2020Q2

REPORT INFORMATION
  Report Type: Report from Study
  Country: US (occurrence: US)
  Receive Date: 20200428
  Receipt Date: 20200428
  Transmission Date: 20200714
  Serious: No
  Sender: FDA-Public Use
  Company Number: NVSC2017US007050

PATIENT
  Sex: Female

DRUGS (7)
  1. ZADITOR [Suspect]
     Active Substance: KETOTIFEN FUMARATE
     Indication: DRY EYE
     Dosage: UNK
     Route: 047
  2. PATADAY [Suspect]
     Active Substance: OLOPATADINE HYDROCHLORIDE
     Indication: DRY EYE
     Dosage: UNK
     Route: 047
  3. CROMOLYN SODIUM. [Suspect]
     Active Substance: CROMOLYN SODIUM
     Indication: DRY EYE
     Dosage: UNK
     Route: 047
  4. KETOROLAC TROMETHAMINE. [Suspect]
     Active Substance: KETOROLAC TROMETHAMINE
     Indication: DRY EYE
     Dosage: UNK
     Route: 047
  5. AZELASTINE HYDROCHLORIDE. [Suspect]
     Active Substance: AZELASTINE HYDROCHLORIDE
     Indication: DRY EYE
     Dosage: UNK
     Route: 047
  6. PATANOL [Suspect]
     Active Substance: OLOPATADINE HYDROCHLORIDE
     Indication: DRY EYE
     Dosage: UNK
     Route: 047
  7. KETOTIFEN [Suspect]
     Active Substance: KETOTIFEN
     Indication: DRY EYE
     Dosage: UNK
     Route: 047

REACTIONS (1)
  - Treatment failure [Unknown]
